FAERS Safety Report 5038329-9 (Version None)
Quarter: 2006Q2

REPORT INFORMATION
  Report Type: 
  Country: None (occurrence: None)
  Receive Date: 20060601
  Receipt Date: 20060121
  Transmission Date: 20061013
  Serious: No
  Sender: FDA-Public Use
  Company Number: 2006PV007529

PATIENT
  Age: 52 Year
  Sex: Male

DRUGS (6)
  1. BYETTA [Suspect]
     Indication: DRUG USE FOR UNKNOWN INDICATION
     Dosage: SC
     Route: 058
     Dates: start: 20051129, end: 20060117
  2. CRESTOR [Concomitant]
  3. METFORMIN [Concomitant]
  4. NYQUIL [Concomitant]
  5. VIAGRA [Concomitant]
  6. CLARITIN [Concomitant]

REACTIONS (1)
  - INJECTION SITE URTICARIA [None]
